FAERS Safety Report 15257821 (Version 1)
Quarter: 2018Q3

REPORT INFORMATION
  Report Type: Report from Study
  Country: JP (occurrence: JP)
  Receive Date: 20180808
  Receipt Date: 20180808
  Transmission Date: 20181010
  Serious: Yes (Death, Disabling, Other)
  Sender: FDA-Public Use
  Company Number: JP-GILEAD-2013-0083374

PATIENT
  Age: 75 Year
  Sex: Male
  Weight: 60 kg

DRUGS (23)
  1. AMBRISENTAN [Suspect]
     Active Substance: AMBRISENTAN
     Indication: PULMONARY ARTERIAL HYPERTENSION
     Dosage: 5 MG, QD
     Route: 048
     Dates: start: 20120529
  2. PREDNISOLONE. [Concomitant]
     Active Substance: PREDNISOLONE
     Route: 048
  3. PROGRAF [Concomitant]
     Active Substance: TACROLIMUS\TACROLIMUS ANHYDROUS
     Route: 048
  4. PROSTANDIN                         /00501501/ [Concomitant]
  5. CEREKINON [Concomitant]
     Active Substance: TRIMEBUTINE
     Route: 048
  6. TERNELIN [Concomitant]
     Active Substance: TIZANIDINE
     Route: 048
  7. PARIET [Concomitant]
     Active Substance: RABEPRAZOLE SODIUM
     Route: 048
  8. PROSTANDIN [Concomitant]
     Route: 061
  9. MUCODYNE [Concomitant]
     Active Substance: CARBOCYSTEINE
     Route: 048
  10. MUCODYNE [Concomitant]
     Active Substance: CARBOCYSTEINE
     Route: 048
  11. PARIET [Concomitant]
     Active Substance: RABEPRAZOLE SODIUM
     Route: 048
  12. REVATIO [Concomitant]
     Active Substance: SILDENAFIL CITRATE
     Indication: PULMONARY ARTERIAL HYPERTENSION
     Route: 048
  13. PENTASA [Concomitant]
     Active Substance: MESALAMINE
     Route: 048
  14. JUVELA N [Concomitant]
     Active Substance: TOCOPHERYL NICOTINATE, D-.ALPHA.
     Route: 048
  15. PREDNISOLONE. [Concomitant]
     Active Substance: PREDNISOLONE
     Route: 048
  16. CHLOPHEDRIN S [Concomitant]
     Route: 048
  17. PROGRAF [Concomitant]
     Active Substance: TACROLIMUS\TACROLIMUS ANHYDROUS
     Route: 048
  18. TERNELIN [Concomitant]
     Active Substance: TIZANIDINE
     Route: 048
  19. REVATIO [Concomitant]
     Active Substance: SILDENAFIL CITRATE
     Dosage: UNK
     Route: 048
  20. CHLOPHEDRIN S                      /00560301/ [Concomitant]
  21. PENTASA [Concomitant]
     Active Substance: MESALAMINE
     Route: 048
  22. CEREKINON [Concomitant]
     Active Substance: TRIMEBUTINE
     Route: 048
  23. JUVELA N [Concomitant]
     Active Substance: TOCOPHERYL NICOTINATE, D-.ALPHA.
     Route: 048

REACTIONS (2)
  - Cardiac failure [Fatal]
  - Pneumonia [Recovered/Resolved]

NARRATIVE: CASE EVENT DATE: 20121113
